FAERS Safety Report 7958399-5 (Version None)
Quarter: 2011Q4

REPORT INFORMATION
  Report Type: 
  Country: None (occurrence: None)
  Receive Date: 20111205
  Receipt Date: 20111128
  Transmission Date: 20120403
  Serious: Yes (Disabling)
  Sender: FDA-Public Use
  Company Number: US-MERCK-1104USA00901

PATIENT
  Age: 68 Year
  Sex: Male

DRUGS (8)
  1. EMSAM [Concomitant]
     Indication: PARKINSON'S DISEASE
     Route: 065
  2. PERCOCET [Concomitant]
     Route: 065
  3. EMSAM [Concomitant]
     Indication: DEPRESSION
     Route: 065
  4. SINEMET [Suspect]
     Indication: PARKINSON'S DISEASE
     Dosage: 1 TABLET EVERY OTHER HOUR
     Route: 048
  5. VIAGRA [Concomitant]
     Route: 065
  6. VICODIN [Concomitant]
     Route: 065
  7. METHYLPHENIDATE [Concomitant]
     Route: 048
  8. PIRACETAM [Concomitant]
     Route: 048

REACTIONS (13)
  - PARAESTHESIA [None]
  - HYPOAESTHESIA [None]
  - ERYTHEMA [None]
  - HYPERHIDROSIS [None]
  - DENTAL CARIES [None]
  - CYANOSIS [None]
  - PERIPHERAL COLDNESS [None]
  - OVERDOSE [None]
  - RASH MACULAR [None]
  - OEDEMA PERIPHERAL [None]
  - TEMPERATURE INTOLERANCE [None]
  - PRURITUS [None]
  - BURNING SENSATION [None]
